FAERS Safety Report 5069385-X (Version None)
Quarter: 2006Q3

REPORT INFORMATION
  Report Type: 
  Country: None (occurrence: None)
  Receive Date: 20060714
  Receipt Date: 20060321
  Transmission Date: 20061208
  Serious: No
  Sender: FDA-Public Use
  Company Number: 2006SP001390

PATIENT
  Age: 64 Year
  Sex: Female
  Weight: 68.0396 kg

DRUGS (2)
  1. LUNESTA [Suspect]
     Indication: SOMNOLENCE
     Dosage: 1 MG;HS;ORAL
     Route: 047
     Dates: start: 20060201, end: 20060201
  2. NEXIUM [Concomitant]

REACTIONS (2)
  - DYSGEUSIA [None]
  - STOMATITIS [None]
